FAERS Safety Report 12503125 (Version 1)
Quarter: 2016Q2

REPORT INFORMATION
  Report Type: Spontaneous
  Country: US (occurrence: US)
  Receive Date: 20160628
  Receipt Date: 20160628
  Transmission Date: 20160815
  Serious: Yes (Other)
  Sender: FDA-Public Use
  Company Number: US-ZYDUS-011361

PATIENT
  Age: 8 Year
  Sex: Male

DRUGS (4)
  1. SIROLIMUS. [Suspect]
     Active Substance: SIROLIMUS
     Indication: IMMUNOSUPPRESSANT DRUG THERAPY
     Route: 065
  2. CICLOSPORIN [Suspect]
     Active Substance: CYCLOSPORINE
     Indication: PRODUCT USED FOR UNKNOWN INDICATION
     Route: 065
  3. TACROLIMUS. [Suspect]
     Active Substance: TACROLIMUS
     Indication: IMMUNOSUPPRESSANT DRUG THERAPY
     Route: 065
  4. CYCLOPHOSPHAMIDE/CYCLOPHOSPHAMIDE MONOHYDRATE [Suspect]
     Active Substance: CYCLOPHOSPHAMIDE
     Indication: LEUKAEMIA
     Route: 065

REACTIONS (11)
  - Respiratory failure [Unknown]
  - Encephalitis [Recovered/Resolved]
  - Insomnia [Unknown]
  - Pneumonitis [Unknown]
  - Cough [Unknown]
  - Pyrexia [Unknown]
  - Fatigue [Unknown]
  - Confusional state [Recovered/Resolved]
  - Anterograde amnesia [Not Recovered/Not Resolved]
  - Malaise [Unknown]
  - Hallucination, visual [Recovered/Resolved]
